FAERS Safety Report 7466496-6 (Version None)
Quarter: 2011Q2

REPORT INFORMATION
  Report Type: 
  Country: None (occurrence: None)
  Receive Date: 20110509
  Receipt Date: 20100816
  Transmission Date: 20111010
  Serious: No
  Sender: FDA-Public Use
  Company Number: US-ALEXION-A201001010

PATIENT
  Sex: Female
  Weight: 141 kg

DRUGS (10)
  1. SOLIRIS [Suspect]
     Indication: PAROXYSMAL NOCTURNAL HAEMOGLOBINURIA
     Dosage: 900 MG, Q2W
     Route: 042
  2. LOMOTIL                            /00034001/ [Concomitant]
     Dosage: 1 TABLET, AS DIRECTED
     Route: 048
  3. MAGNESIUM [Concomitant]
     Dosage: 100 MG, QD
     Route: 048
  4. ATENOLOL [Concomitant]
     Dosage: 50 MG, QD
     Route: 048
  5. SOLIRIS [Suspect]
     Dosage: UNK
     Route: 042
     Dates: start: 20080301
  6. EXJADE [Concomitant]
     Dosage: 500 MG, BID
     Route: 048
  7. K-DUR [Concomitant]
     Dosage: 20 MEQ, QD
     Route: 048
  8. PLAVIX [Concomitant]
     Dosage: 75 MG, QD
     Route: 048
  9. VITAMIN A [Concomitant]
     Dosage: 400 IU, QD
     Route: 048
  10. DIGOXIN [Concomitant]
     Dosage: 250 UG, QD
     Route: 048

REACTIONS (5)
  - DYSPHAGIA [None]
  - PULMONARY CONGESTION [None]
  - HAEMOGLOBIN DECREASED [None]
  - OROPHARYNGEAL PAIN [None]
  - NASOPHARYNGITIS [None]
